FAERS Safety Report 4685250-1 (Version None)
Quarter: 2005Q2

REPORT INFORMATION
  Report Type: 
  Country: None (occurrence: None)
  Receive Date: 20050608
  Receipt Date: 20050603
  Transmission Date: 20051028
  Serious: Yes (Life-Threatening, Hospitalization)
  Sender: FDA-Public Use
  Company Number: US-SANOFI-SYNTHELABO-F01200500888

PATIENT
  Sex: Male
  Weight: 84 kg

DRUGS (11)
  1. CLOPIDOGREL BISULFATE [Suspect]
     Indication: ACUTE CORONARY SYNDROME
     Dosage: UNK
     Route: 048
     Dates: start: 20050520, end: 20050523
  2. CLOPIDOGREL BISULFATE [Suspect]
     Route: 048
     Dates: start: 20050524
  3. LOPRESSOR [Concomitant]
     Indication: DRESSLER'S SYNDROME
     Dates: start: 20050520, end: 20050521
  4. ALTACE [Concomitant]
     Indication: DRESSLER'S SYNDROME
     Dosage: UNK
     Dates: start: 20050520
  5. NITRO [Concomitant]
     Indication: MYOCARDIAL INFARCTION
     Dosage: UNK
     Route: 042
     Dates: start: 20050520, end: 20050523
  6. VERSED [Concomitant]
     Indication: SURGERY
     Dosage: UNK
     Dates: start: 20050520, end: 20050521
  7. FENTANYL [Concomitant]
     Indication: SURGERY
     Dosage: UNK
     Dates: start: 20050520, end: 20050521
  8. POTASSIUM CHLORIDE [Concomitant]
     Indication: BLOOD POTASSIUM DECREASED
     Dosage: UNK
     Dates: start: 20050521
  9. REOPRO [Concomitant]
     Indication: CORONARY ANGIOPLASTY
     Dosage: UNK
     Dates: start: 20050520, end: 20050520
  10. HEPARIN [Concomitant]
     Indication: CORONARY ANGIOPLASTY
     Dosage: UNK
     Dates: start: 20050520, end: 20050521
  11. ECOTRIN [Concomitant]
     Indication: ANGINA PECTORIS
     Dosage: UNK
     Dates: start: 20050511

REACTIONS (6)
  - ACUTE PULMONARY OEDEMA [None]
  - BLOOD PRESSURE INCREASED [None]
  - CHRONIC OBSTRUCTIVE PULMONARY DISEASE [None]
  - EJECTION FRACTION DECREASED [None]
  - MITRAL VALVE INCOMPETENCE [None]
  - PULMONARY HYPERTENSION [None]
